FAERS Safety Report 9272202 (Version 1)
Quarter: 2013Q2

REPORT INFORMATION
  Report Type: Spontaneous
  Country: US (occurrence: US)
  Receive Date: 20130506
  Receipt Date: 20130506
  Transmission Date: 20140414
  Serious: No
  Sender: FDA-Public Use
  Company Number: US-ASTRAZENECA-2013SE10424

PATIENT
  Sex: Male

DRUGS (4)
  1. PRILOSEC OTC [Suspect]
     Indication: NAUSEA
     Dosage: 1 TABLET, 1 ONLY
     Route: 048
     Dates: start: 20130209, end: 20130209
  2. PRILOSEC OTC [Suspect]
     Indication: SALIVARY HYPERSECRETION
     Dosage: 1 TABLET, 1 ONLY
     Route: 048
     Dates: start: 20130209, end: 20130209
  3. PRILOSEC OTC [Suspect]
     Indication: NAUSEA
     Route: 048
  4. PRILOSEC OTC [Suspect]
     Indication: SALIVARY HYPERSECRETION
     Route: 048

REACTIONS (2)
  - Swollen tongue [Not Recovered/Not Resolved]
  - Off label use [Unknown]
